FAERS Safety Report 8387325-2 (Version None)
Quarter: 2012Q2

REPORT INFORMATION
  Report Type: 
  Country: None (occurrence: None)
  Receive Date: 20120525
  Receipt Date: 20120516
  Transmission Date: 20120825
  Serious: Yes (Other)
  Sender: FDA-Public Use
  Company Number: US-ASTRAZENECA-2009UW16768

PATIENT
  Age: 45 Year
  Sex: Female

DRUGS (4)
  1. NEXIUM [Suspect]
     Indication: GASTROOESOPHAGEAL REFLUX DISEASE
     Route: 048
     Dates: start: 20090601
  2. PREVACID [Concomitant]
  3. CALCIUM CARBONATE [Concomitant]
  4. ZANTAC [Concomitant]

REACTIONS (14)
  - BLISTER [None]
  - GASTROOESOPHAGEAL REFLUX DISEASE [None]
  - NASAL CONGESTION [None]
  - ABDOMINAL DISTENSION [None]
  - PAIN [None]
  - ABDOMINAL DISCOMFORT [None]
  - INFLUENZA [None]
  - PANIC ATTACK [None]
  - DYSPEPSIA [None]
  - FLATULENCE [None]
  - GAIT DISTURBANCE [None]
  - VOMITING [None]
  - MALAISE [None]
  - INTENTIONAL DRUG MISUSE [None]
